FAERS Safety Report 10197416 (Version 3)
Quarter: 2014Q3

REPORT INFORMATION
  Report Type: Report from Study
  Country: GB (occurrence: GB)
  Receive Date: 20140527
  Receipt Date: 20140812
  Transmission Date: 20150326
  Serious: Yes (Hospitalization)
  Sender: FDA-Public Use
  Company Number: GB-BRISTOL-MYERS SQUIBB COMPANY-20767224

PATIENT
  Age: 67 Year
  Sex: Female

DRUGS (1)
  1. ABATACEPT SUBQ INJECTION 125MG/ML [Suspect]
     Active Substance: ABATACEPT
     Indication: RHEUMATOID ARTHRITIS
     Dosage: STOPPED ON 05MAY14 AND RESTARTED ON 10JUN14
     Route: 058
     Dates: start: 201312

REACTIONS (3)
  - Lower respiratory tract infection [Unknown]
  - Incorrect route of drug administration [Unknown]
  - Polyarthritis [Unknown]
